FAERS Safety Report 6084261-1 (Version None)
Quarter: 2009Q1

REPORT INFORMATION
  Report Type: 
  Country: None (occurrence: None)
  Receive Date: 20090219
  Receipt Date: 20090211
  Transmission Date: 20090719
  Serious: Yes (Other)
  Sender: FDA-Public Use
  Company Number: PHHY2009DE05446

PATIENT
  Age: 74 Year
  Sex: Male

DRUGS (4)
  1. EXFORGE [Suspect]
     Indication: HYPERTENSION
     Dosage: 160/10 MG (1 DF BID)
     Dates: start: 20090121
  2. RASILEZ [Suspect]
     Indication: HYPERTENSION
     Dosage: 300 MG (1 DF/DAY)
     Dates: start: 20090101
  3. CARMEN [Concomitant]
     Dosage: UNK
     Dates: end: 20090101
  4. ATACAND [Concomitant]
     Dosage: UNK
     Dates: end: 20090101

REACTIONS (9)
  - ABDOMINAL DISCOMFORT [None]
  - ATRIAL FLUTTER [None]
  - BLOOD PRESSURE SYSTOLIC INCREASED [None]
  - COUGH [None]
  - DRY THROAT [None]
  - FLATULENCE [None]
  - INFLUENZA LIKE ILLNESS [None]
  - PLATELET COUNT DECREASED [None]
  - WHITE BLOOD CELL COUNT DECREASED [None]
